FAERS Safety Report 15053021 (Version 1)
Quarter: 2018Q2

REPORT INFORMATION
  Report Type: Spontaneous
  Country: DE (occurrence: DE)
  Receive Date: 20180622
  Receipt Date: 20180622
  Transmission Date: 20180711
  Serious: Yes (Other)
  Sender: FDA-Public Use
  Company Number: DE-ASTRAZENECA-2018SE78370

PATIENT
  Age: 36 Year
  Sex: Female
  Weight: 73 kg

DRUGS (2)
  1. SEROQUEL [Suspect]
     Active Substance: QUETIAPINE FUMARATE
     Indication: BIPOLAR DISORDER
     Route: 048
     Dates: start: 20171114, end: 20171211
  2. SEROQUEL [Suspect]
     Active Substance: QUETIAPINE FUMARATE
     Indication: BIPOLAR DISORDER
     Route: 048
     Dates: start: 20170316, end: 20171113

REACTIONS (2)
  - Exposure during pregnancy [Recovered/Resolved]
  - Gestational diabetes [Recovered/Resolved]
